FAERS Safety Report 4347721-7 (Version None)
Quarter: 2004Q1

REPORT INFORMATION
  Report Type: 
  Country: None (occurrence: None)
  Receive Date: 20040325
  Receipt Date: 20031211
  Transmission Date: 20041129
  Serious: No
  Sender: FDA-Public Use
  Company Number: USA031254516

PATIENT
  Sex: Male

DRUGS (1)
  1. FORTEO [Suspect]
     Dates: start: 20031209

REACTIONS (4)
  - COLD SWEAT [None]
  - DIZZINESS [None]
  - MALAISE [None]
  - VOMITING [None]
